FAERS Safety Report 10570684 (Version 1)
Quarter: 2014Q4

REPORT INFORMATION
  Report Type: Spontaneous
  Country: US (occurrence: None)
  Receive Date: 20141106
  Receipt Date: 20141106
  Transmission Date: 20150529
  Serious: No
  Sender: FDA-Public Use
  Company Number: None

PATIENT
  Age: 35 Year
  Sex: Male

DRUGS (1)
  1. VIVITROL [Suspect]
     Active Substance: NALTREXONE
     Indication: ALCOHOLISM
     Dosage: 380MG?EVERY 4 WEEKS?INTRAMUSCULAR
     Route: 030

REACTIONS (4)
  - Headache [None]
  - Arthralgia [None]
  - Sleep disorder [None]
  - Restlessness [None]
